FAERS Safety Report 5007281-4 (Version None)
Quarter: 2006Q2

REPORT INFORMATION
  Report Type: 
  Country: None (occurrence: None)
  Receive Date: 20060519
  Receipt Date: 20060519
  Transmission Date: 20061013
  Serious: No
  Sender: FDA-Public Use
  Company Number: None

PATIENT
  Sex: Male
  Weight: 54.8852 kg

DRUGS (10)
  1. GATIFLOXACIN [Suspect]
     Indication: PNEUMONIA
     Dosage: 250MG Q DAY PO
     Route: 048
     Dates: start: 20060115, end: 20060117
  2. AMIODARONE [Concomitant]
  3. CLOPIDOGREL [Concomitant]
  4. HYDROCHLOROTHIAZIDE [Concomitant]
  5. LISINOPRIL [Concomitant]
  6. METOPROLOL TARTRATE [Concomitant]
  7. NITROGLYCERIN [Concomitant]
  8. OMEPRAZOLE [Concomitant]
  9. RISEDRONATE NA [Concomitant]
  10. SIMVASTATIN [Concomitant]

REACTIONS (1)
  - HALLUCINATION [None]
